FAERS Safety Report 5017065-9 (Version None)
Quarter: 2006Q2

REPORT INFORMATION
  Report Type: 
  Country: None (occurrence: None)
  Receive Date: 20060526
  Receipt Date: 20060516
  Transmission Date: 20061013
  Serious: Yes (Death)
  Sender: FDA-Public Use
  Company Number: GXKR2006US02737

PATIENT
  Age: 52 Year
  Sex: Female

DRUGS (5)
  1. CARBOPLATIN [Suspect]
     Indication: OVARIAN CANCER
     Dosage: SEE IMAGE
     Dates: start: 20020801, end: 20021201
  2. CARBOPLATIN [Suspect]
     Indication: OVARIAN CANCER
     Dosage: SEE IMAGE
     Dates: start: 20000101
  3. PACLITAXEL [Concomitant]
     Indication: OVARIAN CANCER
     Dates: start: 20000101
  4. ERYTHROPOIETIN (ERYTHROPOIETIN) [Concomitant]
  5. FERROUS SULFATE (FERROUS SUFATE) [Concomitant]

REACTIONS (10)
  - ANAEMIA [None]
  - ERYTHROLEUKAEMIA [None]
  - FEBRILE NEUTROPENIA [None]
  - HAEMORRHAGE INTRACRANIAL [None]
  - LEIOMYOSARCOMA [None]
  - OVARIAN CANCER METASTATIC [None]
  - PLATELET COUNT DECREASED [None]
  - PNEUMONIA [None]
  - PNEUMONITIS [None]
  - THROMBOCYTOPENIA [None]
